FAERS Safety Report 24198619 (Version 1)
Quarter: 2024Q3

REPORT INFORMATION
  Report Type: Spontaneous
  Country: US (occurrence: US)
  Receive Date: 20240812
  Receipt Date: 20240812
  Transmission Date: 20241016
  Serious: No
  Sender: HETERO
  Company Number: US-HETERO-HET2024US02594

PATIENT
  Age: 56 Year
  Sex: Male

DRUGS (2)
  1. INDOMETHACIN [Interacting]
     Active Substance: INDOMETHACIN
     Indication: Arthralgia
     Dosage: UNK (OCCATIONALLY WHENEVER HE HAD PAIN)
     Route: 065
     Dates: start: 20240518, end: 20240518
  2. STELARA [Concomitant]
     Active Substance: USTEKINUMAB
     Indication: Product used for unknown indication
     Dosage: ONCE EVERY 3 MONTHS
     Route: 065

REACTIONS (2)
  - Blood glucose decreased [Recovered/Resolved]
  - Drug interaction [Unknown]

NARRATIVE: CASE EVENT DATE: 20240519
